FAERS Safety Report 8701886 (Version 5)
Quarter: 2012Q4

REPORT INFORMATION
  Report Type: Report from Study
  Country: US (occurrence: US)
  Receive Date: 20120803
  Receipt Date: 20121119
  Transmission Date: 20130627
  Serious: Yes (Hospitalization, Other)
  Sender: FDA-Public Use
  Company Number: US-JNJFOC-20120714568

PATIENT
  Age: 16 Year
  Sex: Female
  Weight: 50.4 kg

DRUGS (6)
  1. REMICADE [Suspect]
     Indication: INFLAMMATORY BOWEL DISEASE
     Route: 042
     Dates: start: 20070913
  2. REMICADE [Suspect]
     Indication: INFLAMMATORY BOWEL DISEASE
     Route: 042
     Dates: start: 20070302
  3. RISPERDAL [Concomitant]
  4. 6-MERCAPTOPURINE [Concomitant]
     Dates: start: 20060707
  5. OMEPRAZOLE [Concomitant]
  6. ZOLOFT [Concomitant]

REACTIONS (1)
  - Clostridium difficile infection [Recovered/Resolved]
